FAERS Safety Report 9241061 (Version 1)
Quarter: 2013Q2

REPORT INFORMATION
  Report Type: Spontaneous
  Country: US (occurrence: None)
  Receive Date: 20130418
  Receipt Date: 20130418
  Transmission Date: 20140414
  Serious: Yes (Other)
  Sender: FDA-Public Use
  Company Number: None

PATIENT
  Age: 28 Year
  Sex: Female
  Weight: 68.04 kg

DRUGS (1)
  1. ORTHO TRI-CYCLEN LO [Suspect]
     Indication: CONTRACEPTION
     Dosage: 3 CYCLES
     Dates: start: 20130217, end: 20130417

REACTIONS (4)
  - Migraine [None]
  - Activities of daily living impaired [None]
  - Impaired work ability [None]
  - Inadequate analgesia [None]
